FAERS Safety Report 6872393-7 (Version None)
Quarter: 2010Q3

REPORT INFORMATION
  Report Type: 
  Country: None (occurrence: None)
  Receive Date: 20100723
  Receipt Date: 20100714
  Transmission Date: 20110219
  Serious: Yes (Hospitalization)
  Sender: FDA-Public Use
  Company Number: US-ABBOTT-10P-163-0658302-00

PATIENT
  Sex: Female
  Weight: 55.842 kg

DRUGS (2)
  1. LUPRON DEPOT [Suspect]
     Indication: MIGRAINE
     Route: 050
     Dates: start: 20100201
  2. VIAMPAT [Concomitant]
     Indication: CONVULSION PROPHYLAXIS
     Dates: start: 20100201

REACTIONS (4)
  - ARTHRALGIA [None]
  - CONVULSION [None]
  - HYPOAESTHESIA [None]
  - PARAESTHESIA [None]
